FAERS Safety Report 18229269 (Version 2)
Quarter: 2020Q4

REPORT INFORMATION
  Report Type: Spontaneous
  Country: FR (occurrence: FR)
  Receive Date: 20200903
  Receipt Date: 20201130
  Transmission Date: 20210113
  Serious: Yes (Hospitalization)
  Sender: FDA-Public Use
  Company Number: FR-GILEAD-2020-0491796

PATIENT
  Age: 52 Year
  Sex: Male
  Weight: 86 kg

DRUGS (3)
  1. BIKTARVY [Suspect]
     Active Substance: BICTEGRAVIR SODIUM\EMTRICITABINE\TENOFOVIR ALAFENAMIDE FUMARATE
     Indication: HIV INFECTION
     Dosage: 1 DOSAGE FORM, QD
     Route: 048
     Dates: start: 20190603, end: 20190923
  2. INDAPAMIDE. [Concomitant]
     Active Substance: INDAPAMIDE
     Route: 048
     Dates: start: 2017
  3. AMLODIPINE [Concomitant]
     Active Substance: AMLODIPINE BESYLATE
     Route: 048
     Dates: start: 2017

REACTIONS (1)
  - Hyperlactacidaemia [Recovering/Resolving]

NARRATIVE: CASE EVENT DATE: 20200807
